FAERS Safety Report 21578464 (Version 2)
Quarter: 2022Q4

REPORT INFORMATION
  Report Type: Spontaneous
  Country: CA (occurrence: CA)
  Receive Date: 20221110
  Receipt Date: 20221208
  Transmission Date: 20230113
  Serious: Yes (Hospitalization)
  Sender: FDA-Public Use
  Company Number: CA-TEVA-2022-CA-2823514

PATIENT
  Age: 68 Year
  Sex: Male

DRUGS (2)
  1. METHOTREXATE [Suspect]
     Active Substance: METHOTREXATE
     Indication: Non-Hodgkin^s lymphoma
     Dosage: 3.4 G/M2 OVER 4 HOURS
     Route: 041
  2. GLUCARPIDASE [Suspect]
     Active Substance: GLUCARPIDASE
     Indication: Toxicity to various agents
     Dosage: 31 UI/KG ON DAY 2
     Route: 042

REACTIONS (3)
  - Nephropathy toxic [Recovered/Resolved]
  - False positive investigation result [Unknown]
  - Hypervolaemia [Unknown]
